FAERS Safety Report 10144191 (Version 1)
Quarter: 2014Q2

REPORT INFORMATION
  Report Type: Spontaneous
  Country: FR (occurrence: FR)
  Receive Date: 20140430
  Receipt Date: 20140430
  Transmission Date: 20141212
  Serious: Yes (Hospitalization)
  Sender: FDA-Public Use
  Company Number: PHHY2014FR050355

PATIENT
  Age: 59 Year
  Sex: Female

DRUGS (4)
  1. WARFARIN [Suspect]
     Indication: DEEP VEIN THROMBOSIS
  2. RED BLOOD CELLS [Concomitant]
  3. VITAMIN K [Concomitant]
     Dosage: 10 MG, UNK
  4. HEPARIN [Concomitant]

REACTIONS (13)
  - Antiphospholipid syndrome [Recovering/Resolving]
  - Thrombocytopenia [Recovering/Resolving]
  - Acute respiratory distress syndrome [Recovering/Resolving]
  - Rales [Recovering/Resolving]
  - Hypoxia [Recovering/Resolving]
  - Hypocapnia [Recovering/Resolving]
  - Haematemesis [Recovering/Resolving]
  - Renal failure [Recovering/Resolving]
  - Renal impairment [Recovering/Resolving]
  - Neutrophilia [Recovering/Resolving]
  - Systemic inflammatory response syndrome [Recovering/Resolving]
  - Metabolic acidosis [Recovering/Resolving]
  - Thrombotic microangiopathy [Recovering/Resolving]
